FAERS Safety Report 15252396 (Version 1)
Quarter: 2018Q3

REPORT INFORMATION
  Report Type: Spontaneous
  Country: US (occurrence: US)
  Receive Date: 20180717
  Receipt Date: 20180717
  Transmission Date: 20181010
  Serious: Yes (Other)
  Sender: FDA-Public Use
  Company Number: None

PATIENT
  Age: 42 Year
  Sex: Female

DRUGS (1)
  1. ENOXAPARIN [Suspect]
     Active Substance: ENOXAPARIN
     Dosage: ?          OTHER ROUTE:INJECTION?

REACTIONS (5)
  - Pain [None]
  - Inflammation [None]
  - Product quality issue [None]
  - Product contamination physical [None]
  - Poor quality drug administered [None]

NARRATIVE: CASE EVENT DATE: 20180709
